FAERS Safety Report 9204700 (Version 3)
Quarter: 2013Q3

REPORT INFORMATION
  Report Type: Spontaneous
  Country: US (occurrence: None)
  Receive Date: 20130329
  Receipt Date: 20130929
  Transmission Date: 20140515
  Serious: Yes (Other)
  Sender: FDA-Public Use
  Company Number: JPI-P-030650

PATIENT
  Age: 36 Year
  Sex: Female
  Weight: 72.58 kg

DRUGS (7)
  1. XYREM [Suspect]
     Indication: CATAPLEXY
     Dosage: (2.25 GM, 2 IN 1 D)
     Route: 048
     Dates: start: 20130308, end: 20130311
  2. BENADRYL [Suspect]
     Indication: HYPERSENSITIVITY
     Dosage: 2 TABS EVERY 4 HOURS FOR 4 DAYS
     Dates: start: 20130312
  3. BECLOMETHASONE DIPROPIONTE HFA [Concomitant]
  4. ALBUTEROL SULFATE INHALATION AEROSOL [Concomitant]
  5. PENTAZOCINE AND NALOXONE [Concomitant]
  6. VITAMIN B [Concomitant]
  7. VITAMIN D [Concomitant]

REACTIONS (5)
  - Hypersensitivity [None]
  - Diarrhoea [None]
  - Headache [None]
  - Paraesthesia [None]
  - Hypersomnia [None]
